FAERS Safety Report 12471972 (Version 2)
Quarter: 2016Q3

REPORT INFORMATION
  Report Type: Spontaneous
  Country: JP (occurrence: JP)
  Receive Date: 20160616
  Receipt Date: 20160705
  Transmission Date: 20161109
  Serious: Yes (Other)
  Sender: FDA-Public Use
  Company Number: JP-JNJFOC-20160525409

PATIENT
  Age: 1 Year
  Sex: Male
  Weight: 12.5 kg

DRUGS (4)
  1. ASPIRIN. [Suspect]
     Active Substance: ASPIRIN
     Indication: KAWASAKI^S DISEASE
     Dosage: 120 MG 3 TIMES IN DAY
     Route: 048
     Dates: start: 20160506, end: 20160512
  2. FROBEN [Concomitant]
     Active Substance: FLURBIPROFEN
     Route: 065
  3. REMICADE [Suspect]
     Active Substance: INFLIXIMAB
     Indication: KAWASAKI^S DISEASE
     Route: 042
     Dates: start: 20160506, end: 20160506
  4. SOLDEM 3A [Concomitant]
     Active Substance: CARBOHYDRATES\POTASSIUM CHLORIDE\SODIUM CHLORIDE\SODIUM LACTATE
     Indication: KAWASAKI^S DISEASE
     Route: 042
     Dates: start: 20160430, end: 20160511

REACTIONS (5)
  - Product use issue [Unknown]
  - Petechiae [Recovering/Resolving]
  - Off label use [Unknown]
  - Rash [Recovered/Resolved]
  - Pyrexia [Unknown]

NARRATIVE: CASE EVENT DATE: 201605
